FAERS Safety Report 4727028-6 (Version None)
Quarter: 2005Q3

REPORT INFORMATION
  Report Type: 
  Country: None (occurrence: None)
  Receive Date: 20050726
  Receipt Date: 20050726
  Transmission Date: 20060218
  Serious: No
  Sender: FDA-Public Use
  Company Number: None

PATIENT
  Age: 26 Year
  Sex: Male
  Weight: 79.3795 kg

DRUGS (6)
  1. LEXAPRO [Suspect]
     Indication: ANXIETY
     Dosage: 20 MG 1/DAY-MORNING ORAL
     Route: 048
     Dates: start: 20050620, end: 20050630
  2. LEXAPRO [Suspect]
     Indication: MAJOR DEPRESSION
     Dosage: 20 MG 1/DAY-MORNING ORAL
     Route: 048
     Dates: start: 20050620, end: 20050630
  3. LEXAPRO [Suspect]
     Indication: SUICIDAL IDEATION
     Dosage: 20 MG 1/DAY-MORNING ORAL
     Route: 048
     Dates: start: 20050620, end: 20050630
  4. LEXAPRO [Suspect]
     Indication: SUICIDE ATTEMPT
     Dosage: 20 MG 1/DAY-MORNING ORAL
     Route: 048
     Dates: start: 20050620, end: 20050630
  5. OXAZEPAM [Concomitant]
  6. ALPRAZOLAM [Concomitant]

REACTIONS (10)
  - ABNORMAL BEHAVIOUR [None]
  - AGITATION [None]
  - ENERGY INCREASED [None]
  - INSOMNIA [None]
  - MUSCLE TIGHTNESS [None]
  - NICOTINE DEPENDENCE [None]
  - RESTLESSNESS [None]
  - SEROTONIN SYNDROME [None]
  - TRISMUS [None]
  - YAWNING [None]
